FAERS Safety Report 7946219-4 (Version None)
Quarter: 2011Q4

REPORT INFORMATION
  Report Type: 
  Country: None (occurrence: None)
  Receive Date: 20111123
  Receipt Date: 20111118
  Transmission Date: 20120403
  Serious: Yes (Life-Threatening)
  Sender: FDA-Public Use
  Company Number: 2011SP054467

PATIENT
  Age: 67 Year
  Sex: Male

DRUGS (4)
  1. PEG-INTRON [Suspect]
     Indication: HEPATITIS C
     Dosage: 80 MCG;QW;SC
     Route: 058
     Dates: start: 20101201, end: 20111108
  2. PEG-INTRON [Suspect]
     Indication: LIVER DISORDER
     Dosage: 80 MCG;QW;SC
     Route: 058
     Dates: start: 20101201, end: 20111108
  3. ENALAPRIL MALEATE [Concomitant]
  4. ASPIRIN [Concomitant]

REACTIONS (3)
  - GASTRIC HAEMORRHAGE [None]
  - AUTOIMMUNE THROMBOCYTOPENIA [None]
  - HAEMOGLOBIN DECREASED [None]
